FAERS Safety Report 9100653 (Version 1)
Quarter: 2013Q1

REPORT INFORMATION
  Report Type: Spontaneous
  Country: US (occurrence: None)
  Receive Date: 20130220
  Receipt Date: 20130220
  Transmission Date: 20140127
  Serious: Yes (Other)
  Sender: FDA-Public Use
  Company Number: None

PATIENT
  Age: 67 Year
  Sex: Male
  Weight: 70.31 kg

DRUGS (1)
  1. AVELOX 400MG BAYER HEALTHCARE PHARMACEUTICALS [Suspect]
     Indication: RESPIRATORY TRACT INFECTION
     Dosage: 1     DAY     PO?02/13/2013  --  02/14/2013
     Route: 048
     Dates: start: 20130213, end: 20130214

REACTIONS (6)
  - Fatigue [None]
  - Feeling abnormal [None]
  - Restlessness [None]
  - Tremor [None]
  - Muscle tightness [None]
  - Muscle strain [None]
